FAERS Safety Report 12594674 (Version 5)
Quarter: 2017Q1

REPORT INFORMATION
  Report Type: Spontaneous
  Country: US (occurrence: US)
  Receive Date: 20160726
  Receipt Date: 20170201
  Transmission Date: 20170428
  Serious: Yes (Other)
  Sender: FDA-Public Use
  Company Number: US-ACTELION-A-US2016-139450

PATIENT
  Age: 77 Year
  Sex: Female
  Weight: 73.47 kg

DRUGS (5)
  1. ADCIRCA [Concomitant]
     Active Substance: TADALAFIL
  2. UPTRAVI [Suspect]
     Active Substance: SELEXIPAG
     Dosage: 400 MCG, BID
     Route: 048
     Dates: start: 20160707
  3. UPTRAVI [Suspect]
     Active Substance: SELEXIPAG
     Dosage: 200 MCG, BID
     Route: 048
  4. LETAIRIS [Concomitant]
     Active Substance: AMBRISENTAN
  5. UPTRAVI [Suspect]
     Active Substance: SELEXIPAG
     Indication: PULMONARY ARTERIAL HYPERTENSION
     Dosage: 400 MCG, BID
     Route: 048
     Dates: start: 20160623, end: 201607

REACTIONS (8)
  - High frequency ablation [Unknown]
  - Head discomfort [Unknown]
  - Hyperventilation [Unknown]
  - Anaemia [Unknown]
  - Diarrhoea [Unknown]
  - Heart rate increased [Unknown]
  - Fatigue [Unknown]
  - Sleep disorder [Unknown]
